FAERS Safety Report 6825817-5 (Version None)
Quarter: 2010Q3

REPORT INFORMATION
  Report Type: 
  Country: None (occurrence: None)
  Receive Date: 20100709
  Receipt Date: 20100629
  Transmission Date: 20110219
  Serious: No
  Sender: FDA-Public Use
  Company Number: 2009BI033283

PATIENT
  Sex: Male

DRUGS (3)
  1. TYSABRI [Suspect]
     Indication: MULTIPLE SCLEROSIS
     Route: 042
     Dates: start: 20080418
  2. AMPYRA [Concomitant]
     Indication: GAIT DISTURBANCE
     Dates: start: 20100608
  3. AMPYRA [Concomitant]
     Indication: BALANCE DISORDER
     Dates: start: 20100608

REACTIONS (8)
  - ASTHENIA [None]
  - BALANCE DISORDER [None]
  - BRADYPHRENIA [None]
  - CARDIAC DISORDER [None]
  - FALL [None]
  - GENERAL SYMPTOM [None]
  - HYPERHIDROSIS [None]
  - MUSCLE SPASTICITY [None]
